FAERS Safety Report 11526352 (Version 1)
Quarter: 2015Q3

REPORT INFORMATION
  Report Type: Spontaneous
  Country: US (occurrence: US)
  Receive Date: 20150903
  Receipt Date: 20150903
  Transmission Date: 20151125
  Serious: Yes (Disabling, Other)
  Sender: FDA-Public Use
  Company Number: US-ELI_LILLY_AND_COMPANY-US201308005537

PATIENT

DRUGS (1)
  1. CYMBALTA [Suspect]
     Active Substance: DULOXETINE HYDROCHLORIDE
     Dosage: 60 MG, QD
     Route: 065
     Dates: start: 200803, end: 200901

REACTIONS (8)
  - Anxiety [Unknown]
  - Affective disorder [Unknown]
  - Withdrawal syndrome [Unknown]
  - Abnormal behaviour [Unknown]
  - Malaise [Unknown]
  - Poisoning [Unknown]
  - Suicidal ideation [Recovered/Resolved]
  - Pain in extremity [Unknown]

NARRATIVE: CASE EVENT DATE: 200902
